FAERS Safety Report 6221840-2 (Version None)
Quarter: 2009Q2

REPORT INFORMATION
  Report Type: 
  Country: None (occurrence: None)
  Receive Date: 20090608
  Receipt Date: 20090526
  Transmission Date: 20091009
  Serious: Yes (Death)
  Sender: FDA-Public Use
  Company Number: 230824K08USA

PATIENT
  Age: 43 Year
  Sex: Male

DRUGS (2)
  1. REBIF [Suspect]
     Indication: MULTIPLE SCLEROSIS
     Dosage: 44 MCG, 3 IN 1 WEEKS, SUBCUTANEOUS
     Route: 058
     Dates: start: 20080101, end: 20080716
  2. UNSPECIFIED MEDICATIONS (ALL OTHE THERAPEUTIC PRODUCTS) [Concomitant]

REACTIONS (2)
  - HAEMORRHAGE [None]
  - LIMB TRAUMATIC AMPUTATION [None]
